FAERS Safety Report 4347458-4 (Version None)
Quarter: 2004Q2

REPORT INFORMATION
  Report Type: 
  Country: None (occurrence: None)
  Receive Date: 20040426
  Receipt Date: 20040426
  Transmission Date: 20050107
  Serious: No
  Sender: FDA-Public Use
  Company Number: None

PATIENT
  Age: 51 Year
  Sex: Female
  Weight: 56 kg

DRUGS (8)
  1. LINEZOLID 600 MG PFIZER [Suspect]
     Indication: CATHETER RELATED INFECTION
     Dosage: 600 MG BID ORAL
     Route: 048
     Dates: start: 20040408, end: 20040412
  2. LINEZOLID 600 MG PFIZER [Suspect]
     Indication: DIALYSIS
     Dosage: 600 MG BID ORAL
     Route: 048
     Dates: start: 20040408, end: 20040412
  3. LINEZOLID 600 MG PFIZER [Suspect]
     Indication: GLYCOPEPTIDE ANTIBIOTIC RESISTANT ENTEROCOCCAL INFECTION
     Dosage: 600 MG BID ORAL
     Route: 048
     Dates: start: 20040408, end: 20040412
  4. CALCIUM CARBONATE [Concomitant]
  5. DIGOXIN [Concomitant]
  6. LOMOTIL [Concomitant]
  7. PANTOPRAZOLE [Concomitant]
  8. CELEXA [Concomitant]

REACTIONS (1)
  - PLATELET COUNT DECREASED [None]
